FAERS Safety Report 5471813-2 (Version None)
Quarter: 2007Q3

REPORT INFORMATION
  Report Type: 
  Country: None (occurrence: None)
  Receive Date: 20070928
  Receipt Date: 20070607
  Transmission Date: 20080115
  Serious: No
  Sender: FDA-Public Use
  Company Number: US-BRISTOL-MYERS SQUIBB COMPANY-13806518

PATIENT
  Sex: Male

DRUGS (7)
  1. DEFINITY [Suspect]
     Route: 040
  2. METOPROLOL SUCCINATE [Concomitant]
  3. BUMEX [Concomitant]
  4. FOSINOPRIL SODIUM [Concomitant]
  5. GABAPENTIN [Concomitant]
  6. COUMADIN [Concomitant]
  7. AMBIEN [Concomitant]

REACTIONS (1)
  - RASH [None]
